FAERS Safety Report 9889984 (Version 1)
Quarter: 2014Q1

REPORT INFORMATION
  Report Type: Spontaneous
  Country: US (occurrence: US)
  Receive Date: 20140212
  Receipt Date: 20140212
  Transmission Date: 20141002
  Serious: No
  Sender: FDA-Public Use
  Company Number: US-009507513-1402USA002973

PATIENT
  Sex: Female
  Weight: 73.47 kg

DRUGS (1)
  1. IMPLANON [Suspect]
     Dosage: IMPLANON IMPLANT (EA) 68 MG
     Route: 059
     Dates: start: 20120906

REACTIONS (3)
  - Unintended pregnancy [Recovered/Resolved]
  - Menstrual disorder [Unknown]
  - Medical device complication [Unknown]
